FAERS Safety Report 9509254 (Version 1)
Quarter: 2013Q1

REPORT INFORMATION
  Report Type: Spontaneous
  Country: US (occurrence: None)
  Receive Date: 20130305
  Receipt Date: 20130305
  Transmission Date: 20140127
  Serious: Yes (Other)
  Sender: FDA-Public Use
  Company Number: 163-21880-12022940

PATIENT
  Age: 71 Year
  Sex: Male

DRUGS (6)
  1. REVLIMID (LENALIDOMIDE) (CAPSULES) [Suspect]
     Route: 048
     Dates: start: 20120120, end: 20120224
  2. RUXOLITINIB [Suspect]
     Indication: MYELOFIBROSIS
     Route: 048
     Dates: start: 20120120
  3. ASPIRIN (ACETYLSALICYLIC ACID) [Concomitant]
  4. DILTIAZEM CD (DILTIAZEM HYDROCHLORIDE) [Concomitant]
  5. FLECAINE (FLECAINIDE ACETATE) [Concomitant]
  6. LEVOTHYROXINE (LEVOTHYROXINE) [Concomitant]

REACTIONS (1)
  - Back pain [None]
